FAERS Safety Report 10289558 (Version 1)
Quarter: 2014Q3

REPORT INFORMATION
  Report Type: Spontaneous
  Country: US (occurrence: None)
  Receive Date: 20140707
  Receipt Date: 20140707
  Transmission Date: 20150326
  Serious: No
  Sender: FDA-Public Use
  Company Number: None

PATIENT
  Age: 25 Year
  Sex: Female
  Weight: 81.65 kg

DRUGS (1)
  1. TRIXAICIN [Suspect]
     Active Substance: CAPSICUM OLEORESIN
     Indication: MYALGIA
     Dosage: AS NEEDED APPLIED TO A SURFACE, USUALLY THE SKIN
     Route: 061
     Dates: start: 20140702, end: 20140703

REACTIONS (1)
  - Burning sensation [None]

NARRATIVE: CASE EVENT DATE: 20140703
